FAERS Safety Report 6328154-0 (Version None)
Quarter: 2009Q3

REPORT INFORMATION
  Report Type: 
  Country: None (occurrence: None)
  Receive Date: 20090825
  Receipt Date: 20090127
  Transmission Date: 20100115
  Serious: No
  Sender: FDA-Public Use
  Company Number: US-ABBOTT-09P-163-0500589-00

PATIENT
  Sex: Male
  Weight: 86.26 kg

DRUGS (6)
  1. SYNTHROID [Suspect]
     Indication: THYROID DISORDER
     Route: 048
     Dates: start: 20050101
  2. SYNTHROID [Suspect]
     Indication: HYPOTHYROIDISM
  3. DURAGESIC-100 [Concomitant]
     Indication: PAIN
     Dosage: PATCH
     Route: 061
  4. NADOLOL [Concomitant]
     Indication: MIGRAINE
     Route: 048
  5. MULTI-VITAMIN [Concomitant]
     Indication: DRUG USE FOR UNKNOWN INDICATION
     Route: 048
  6. VITAMIN B-12 [Concomitant]
     Indication: DRUG USE FOR UNKNOWN INDICATION
     Route: 048

REACTIONS (2)
  - INSOMNIA [None]
  - IRRITABILITY [None]
